FAERS Safety Report 6711378-8 (Version None)
Quarter: 2010Q2

REPORT INFORMATION
  Report Type: 
  Country: None (occurrence: None)
  Receive Date: 20100504
  Receipt Date: 20100504
  Transmission Date: 20101027
  Serious: Yes (Other)
  Sender: FDA-Public Use
  Company Number: None

PATIENT
  Sex: Female
  Weight: 79.5 kg

DRUGS (1)
  1. ACTONEL [Suspect]
     Indication: BONE DENSITY ABNORMAL
     Dosage: 150 MG ONCE
     Dates: start: 20100325

REACTIONS (7)
  - ARTHRALGIA [None]
  - BONE PAIN [None]
  - CHILLS [None]
  - DEPRESSION [None]
  - DYSSTASIA [None]
  - MUSCLE SPASMS [None]
  - PAIN [None]
